FAERS Safety Report 7385053-3 (Version None)
Quarter: 2011Q1

REPORT INFORMATION
  Report Type: 
  Country: None (occurrence: None)
  Receive Date: 20110330
  Receipt Date: 20110303
  Transmission Date: 20110831
  Serious: No
  Sender: FDA-Public Use
  Company Number: US-B.I. PHARMACEUTICALS,INC./RIDGEFIELD-2011-BP-06325BP

PATIENT
  Sex: Male

DRUGS (24)
  1. LORATADINE [Concomitant]
     Indication: SEASONAL ALLERGY
     Dosage: 10 MG
     Route: 048
  2. RANITIDINE [Concomitant]
     Indication: GASTROOESOPHAGEAL REFLUX DISEASE
     Dosage: 150 MG
     Route: 048
  3. ASPIRIN [Concomitant]
     Indication: PROPHYLAXIS
     Dosage: 81 MG
     Route: 048
  4. IPRATROPIUM BROMIDE [Concomitant]
     Indication: CHRONIC OBSTRUCTIVE PULMONARY DISEASE
     Route: 055
  5. BROVANA [Concomitant]
     Indication: CHRONIC OBSTRUCTIVE PULMONARY DISEASE
     Dosage: 15 MCG
     Route: 055
  6. HYDROCODONE BITARTRATE [Concomitant]
     Indication: OSTEOARTHRITIS
     Route: 048
  7. LOVASTATIN [Concomitant]
     Indication: BLOOD CHOLESTEROL INCREASED
     Route: 048
  8. CARVEDILOL [Concomitant]
     Indication: CARDIAC DISORDER
     Route: 048
  9. TESTOSTERONE [Concomitant]
     Indication: BLOOD TESTOSTERONE ABNORMAL
  10. TAMSULOSIN (GENERIC) [Concomitant]
     Indication: PROPHYLAXIS
     Dosage: 4 MG
     Route: 048
  11. NIFEDIPINE [Concomitant]
     Indication: HYPERTENSION
     Dosage: 30 MG
     Route: 048
  12. NASONEX [Concomitant]
     Indication: SEASONAL ALLERGY
     Dosage: 50 MG
  13. LISINOPRIL [Concomitant]
     Indication: CARDIAC DISORDER
     Route: 048
  14. ATROVENT HFA [Concomitant]
     Indication: CHRONIC OBSTRUCTIVE PULMONARY DISEASE
     Route: 055
  15. FUROSEMIDE [Concomitant]
     Indication: FLUID RETENTION
     Dosage: 40 MG
     Route: 048
  16. SPIRONOLACTONE [Concomitant]
     Indication: FLUID RETENTION
     Dosage: 25 MG
     Route: 048
  17. IPRATROPIUM BROMIDE [Concomitant]
     Indication: SEASONAL ALLERGY
  18. PROAIR HFA [Concomitant]
     Indication: CHRONIC OBSTRUCTIVE PULMONARY DISEASE
     Route: 055
  19. DEXAMETH [Concomitant]
     Indication: CHRONIC OBSTRUCTIVE PULMONARY DISEASE
     Dosage: 4 MG
     Route: 055
  20. CARISOPRODOL [Concomitant]
     Indication: OSTEOARTHRITIS
     Dosage: 350 MG
     Route: 048
  21. FLECTOR [Concomitant]
     Indication: OSTEOARTHRITIS
     Route: 061
  22. KLOR-CON [Concomitant]
     Indication: PROPHYLAXIS
     Dosage: 20 MG
     Route: 048
  23. O2 [Concomitant]
     Indication: CHRONIC OBSTRUCTIVE PULMONARY DISEASE
     Route: 055
  24. PRADAXA [Suspect]
     Indication: ATRIAL FIBRILLATION
     Dosage: 300 MG
     Route: 048
     Dates: start: 20110218

REACTIONS (6)
  - RECTAL HAEMORRHAGE [None]
  - HAEMORRHAGE [None]
  - ANORECTAL DISCOMFORT [None]
  - DIARRHOEA [None]
  - FAECAL INCONTINENCE [None]
  - ANAL HAEMORRHAGE [None]
